FAERS Safety Report 8339752-7 (Version None)
Quarter: 2012Q2

REPORT INFORMATION
  Report Type: 
  Country: None (occurrence: None)
  Receive Date: 20120507
  Receipt Date: 20120430
  Transmission Date: 20120825
  Serious: Yes (Hospitalization)
  Sender: FDA-Public Use
  Company Number: US-BAYER-2011-099079

PATIENT
  Age: 36 Year
  Sex: Female
  Weight: 125 kg

DRUGS (4)
  1. LISINOPRIL [Concomitant]
     Dosage: UNK
     Dates: end: 20090905
  2. VERAPAMIL [Concomitant]
     Indication: HYPERTENSION
     Dosage: UNK
     Dates: start: 20050101, end: 20090905
  3. YAZ [Suspect]
     Dosage: UNK
     Dates: start: 20090401, end: 20090906
  4. AVALIDE [Concomitant]
     Dosage: UNK
     Dates: start: 20040101, end: 20050101

REACTIONS (6)
  - DEEP VEIN THROMBOSIS [None]
  - PAIN IN EXTREMITY [None]
  - DYSPNOEA [None]
  - PULMONARY EMBOLISM [None]
  - CHEST PAIN [None]
  - INJURY [None]
